FAERS Safety Report 5113385-8 (Version None)
Quarter: 2006Q3

REPORT INFORMATION
  Report Type: 
  Country: None (occurrence: None)
  Receive Date: 20060920
  Receipt Date: 20060903
  Transmission Date: 20061208
  Serious: Yes (Hospitalization)
  Sender: FDA-Public Use
  Company Number: 229716

PATIENT
  Age: 61 Year
  Sex: Female
  Weight: 45 kg

DRUGS (3)
  1. AVASTIN [Suspect]
     Indication: COLON CANCER
     Dosage: 315 MG, Q3W, INTRAVENOUS
     Route: 042
     Dates: start: 20051222, end: 20060830
  2. CAPECITABINE(CAPECITABINE) [Suspect]
     Indication: COLON CANCER
     Dosage: 1000 MG/M2, BID, ORAL
     Route: 048
     Dates: start: 20051222
  3. OXALIPLATIN [Suspect]
     Indication: COLON CANCER
     Dosage: 140 MG, Q3W, INTRAVENOUS
     Route: 042

REACTIONS (1)
  - CROHN'S DISEASE [None]
